FAERS Safety Report 12761585 (Version 3)
Quarter: 2016Q4

REPORT INFORMATION
  Report Type: Spontaneous
  Country: US (occurrence: US)
  Receive Date: 20160920
  Receipt Date: 20161027
  Transmission Date: 20170207
  Serious: Yes (Other)
  Sender: FDA-Public Use
  Company Number: PHEH2016US023537

PATIENT
  Age: 41 Year
  Sex: Male

DRUGS (3)
  1. MELOXICAM. [Suspect]
     Active Substance: MELOXICAM
     Indication: PSORIATIC ARTHROPATHY
     Dosage: UNK
     Route: 048
     Dates: start: 201605, end: 201607
  2. NEXIUM [Suspect]
     Active Substance: ESOMEPRAZOLE MAGNESIUM
     Indication: GASTRIC ULCER
     Dosage: UNK
     Route: 048
     Dates: start: 201607, end: 201609
  3. COSENTYX [Suspect]
     Active Substance: SECUKINUMAB
     Indication: PSORIASIS
     Dosage: 300 MG, QMO
     Route: 058
     Dates: start: 20150601, end: 20160912

REACTIONS (4)
  - Colitis microscopic [Recovering/Resolving]
  - Gastric ulcer haemorrhage [Not Recovered/Not Resolved]
  - Diarrhoea [Unknown]
  - Psoriatic arthropathy [Unknown]

NARRATIVE: CASE EVENT DATE: 201608
